FAERS Safety Report 25049352 (Version 1)
Quarter: 2025Q1

REPORT INFORMATION
  Report Type: Spontaneous
  Country: US (occurrence: US)
  Receive Date: 20250307
  Receipt Date: 20250307
  Transmission Date: 20250409
  Serious: Yes (Life-Threatening, Hospitalization, Other)
  Sender: Unknown Manufacturer
  Company Number: US-862174955-ML2025-01086

PATIENT
  Sex: Female

DRUGS (1)
  1. BUPROPION [Suspect]
     Active Substance: BUPROPION
     Indication: Product used for unknown indication
     Route: 048

REACTIONS (6)
  - Circulatory collapse [Recovered/Resolved]
  - Shock [Recovered/Resolved]
  - Encephalopathy [Recovered/Resolved]
  - Overdose [Unknown]
  - Seizure [Recovered/Resolved]
  - Cardiac arrest [Recovered/Resolved]
